FAERS Safety Report 21544904 (Version 1)
Quarter: 2022Q4

REPORT INFORMATION
  Report Type: Spontaneous
  Country: None (occurrence: CN)
  Receive Date: 20221102
  Receipt Date: 20221102
  Transmission Date: 20230113
  Serious: Yes (Hospitalization)
  Sender: FDA-Public Use
  Company Number: CN-Jiangsu Hengrui Medicine Co., Ltd.-2134444

PATIENT
  Age: 79 Year
  Sex: Male
  Weight: 55 kg

DRUGS (1)
  1. GABAPENTIN [Suspect]
     Active Substance: GABAPENTIN
     Indication: Neuralgia
     Route: 048
     Dates: start: 20221010, end: 20221011

REACTIONS (5)
  - Vomiting [Recovering/Resolving]
  - Vertigo [Recovering/Resolving]
  - Somnolence [Recovering/Resolving]
  - Gait disturbance [Recovering/Resolving]
  - Nystagmus [Recovering/Resolving]

NARRATIVE: CASE EVENT DATE: 20221011
